FAERS Safety Report 4478948-1 (Version None)
Quarter: 2004Q4

REPORT INFORMATION
  Report Type: 
  Country: None (occurrence: None)
  Receive Date: 20040923
  Receipt Date: 20040729
  Transmission Date: 20050328
  Serious: No
  Sender: FDA-Public Use
  Company Number: 208162

PATIENT
  Age: 63 Year
  Sex: Male
  Weight: 73 kg

DRUGS (4)
  1. AVASTIN [Suspect]
     Indication: COLORECTAL CANCER METASTATIC
     Dosage: 5 MG/KG, INTRAVENOUS
     Route: 042
     Dates: start: 20040301
  2. FLUOROURACIL [Concomitant]
  3. OXALOPLATIN (OXALIPLATIN) [Concomitant]
  4. LEUCOVORIN (LEUCOVORIN CALCIUM) [Concomitant]

REACTIONS (2)
  - BONE MARROW DEPRESSION [None]
  - THROMBOCYTOPENIA [None]
